FAERS Safety Report 21023419 (Version 1)
Quarter: 2022Q2

REPORT INFORMATION
  Report Type: Spontaneous
  Country: US (occurrence: None)
  Receive Date: 20220629
  Receipt Date: 20220629
  Transmission Date: 20220721
  Serious: Yes (Hospitalization)
  Sender: FDA-Public Use
  Company Number: None

PATIENT
  Age: 69 Year
  Sex: Male
  Weight: 203 kg

DRUGS (1)
  1. HALOPERIDOL [Suspect]
     Active Substance: HALOPERIDOL
     Indication: Schizoaffective disorder
     Dosage: 15 MG EVERY DAY PO
     Route: 048
     Dates: start: 20140804, end: 20210626

REACTIONS (3)
  - Parkinsonian gait [None]
  - Akathisia [None]
  - Restlessness [None]

NARRATIVE: CASE EVENT DATE: 20210627
